FAERS Safety Report 23854656 (Version 1)
Quarter: 2024Q2

REPORT INFORMATION
  Report Type: Spontaneous
  Country: US (occurrence: None)
  Receive Date: 20240514
  Receipt Date: 20240514
  Transmission Date: 20240715
  Serious: Yes (unspecified)
  Sender: FDA-Public Use
  Company Number: None

PATIENT
  Age: 62 Year
  Sex: Male
  Weight: 81.6 kg

DRUGS (1)
  1. CEFEPIME [Suspect]
     Active Substance: CEFEPIME HYDROCHLORIDE
     Indication: Urinary tract infection
     Dosage: FREQUENCY : 3 TIMES A DAY;?
     Route: 042
     Dates: start: 20240327, end: 20240514

REACTIONS (2)
  - Fatigue [None]
  - Therapy cessation [None]

NARRATIVE: CASE EVENT DATE: 20240514
